FAERS Safety Report 20732773 (Version 3)
Quarter: 2022Q2

REPORT INFORMATION
  Report Type: Spontaneous
  Country: SI (occurrence: SI)
  Receive Date: 20220420
  Receipt Date: 20220429
  Transmission Date: 20220721
  Serious: Yes (Hospitalization, Other)
  Sender: FDA-Public Use
  Company Number: SI-NOVARTISPH-NVSC2022SI082555

PATIENT
  Age: 71 Year
  Sex: Male

DRUGS (13)
  1. ENALAPRIL MALEATE [Suspect]
     Active Substance: ENALAPRIL MALEATE
     Indication: Hypertension
     Dosage: UNK
     Route: 065
  2. AMLODIPINE [Suspect]
     Active Substance: AMLODIPINE BESYLATE
     Indication: Product used for unknown indication
     Dosage: 5 MG, QD
     Route: 065
  3. FUROSEMIDE [Suspect]
     Active Substance: FUROSEMIDE
     Indication: Oedema peripheral
     Dosage: UNK (FORMULATION- AMPULE)
     Route: 030
  4. CIPROFLOXACIN [Suspect]
     Active Substance: CIPROFLOXACIN
     Indication: Product used for unknown indication
     Dosage: UNK
     Route: 065
  5. FUROSEMIDE [Suspect]
     Active Substance: FUROSEMIDE
     Indication: Product used for unknown indication
     Dosage: UNK
     Route: 042
  6. FUROSEMIDE [Suspect]
     Active Substance: FUROSEMIDE
     Dosage: UNK (ROOTE: PER OS)
     Route: 065
  7. VALSARTAN [Suspect]
     Active Substance: VALSARTAN
     Indication: Product used for unknown indication
     Dosage: 80 MG
     Route: 065
  8. PREGABALIN [Suspect]
     Active Substance: PREGABALIN
     Indication: Product used for unknown indication
     Dosage: UNK
     Route: 065
  9. INDAPAMIDE\PERINDOPRIL ERBUMINE [Concomitant]
     Active Substance: INDAPAMIDE\PERINDOPRIL ERBUMINE
     Indication: Product used for unknown indication
     Dosage: UNK
     Route: 065
  10. METHYLPREDNISOLONE [Concomitant]
     Active Substance: METHYLPREDNISOLONE
     Indication: Product used for unknown indication
     Dosage: 500 MG
     Route: 042
  11. CYCLOPHOSPHAMIDE [Concomitant]
     Active Substance: CYCLOPHOSPHAMIDE
     Indication: Product used for unknown indication
     Dosage: UNK UNK, QMO, (STOP DATE- 13 DEC)
     Route: 042
  12. FENOTEROL HYDROBROMIDE\IPRATROPIUM BROMIDE [Concomitant]
     Active Substance: FENOTEROL HYDROBROMIDE\IPRATROPIUM BROMIDE
     Indication: Product used for unknown indication
     Dosage: UNK
     Route: 065
  13. WARFARIN SODIUM [Concomitant]
     Active Substance: WARFARIN SODIUM
     Indication: Product used for unknown indication
     Dosage: UNK (STOP DATE- 13 DEC)
     Route: 065

REACTIONS (48)
  - Acute respiratory distress syndrome [Unknown]
  - Renal failure [Unknown]
  - Proteinuria [Unknown]
  - Respiratory rate increased [Recovering/Resolving]
  - Glomerulonephritis acute [Unknown]
  - Haemoptysis [Unknown]
  - Interstitial lung disease [Recovering/Resolving]
  - Lower respiratory tract inflammation [Recovering/Resolving]
  - Enterobacter sepsis [Recovering/Resolving]
  - Bronchiectasis [Unknown]
  - Granulomatosis with polyangiitis [Unknown]
  - Eosinophilic granulomatosis with polyangiitis [Unknown]
  - Goodpasture^s syndrome [Unknown]
  - Systemic lupus erythematosus [Unknown]
  - Cryoglobulinaemia [Unknown]
  - Glomerulonephritis [Unknown]
  - Cardiac failure acute [Unknown]
  - Peripheral swelling [Recovered/Resolved]
  - Multiple organ dysfunction syndrome [Unknown]
  - Anti-neutrophil cytoplasmic antibody positive vasculitis [Recovered/Resolved]
  - Steroid diabetes [Unknown]
  - Polyneuropathy [Unknown]
  - Muscular weakness [Unknown]
  - Paraesthesia [Unknown]
  - Rectal haemorrhage [Unknown]
  - Pulmonary embolism [Unknown]
  - Gastritis erosive [Unknown]
  - Pericarditis [Unknown]
  - Henoch-Schonlein purpura [Unknown]
  - Abdominal distension [Unknown]
  - Haematocrit decreased [Unknown]
  - Blood urea increased [Unknown]
  - Blood creatinine increased [Unknown]
  - Haematuria [Unknown]
  - C-reactive protein increased [Unknown]
  - Procalcitonin decreased [Unknown]
  - Back pain [Unknown]
  - Cough [Unknown]
  - Joint swelling [Unknown]
  - Oedema peripheral [Recovered/Resolved]
  - Microscopic polyangiitis [Unknown]
  - Dyspnoea [Unknown]
  - Nausea [Unknown]
  - Dizziness [Unknown]
  - Illness [Unknown]
  - Bronchitis [Unknown]
  - Anaemia [Unknown]
  - Haemorrhoids [Unknown]
